FAERS Safety Report 5591087-1 (Version None)
Quarter: 2008Q1

REPORT INFORMATION
  Report Type: 
  Country: None (occurrence: None)
  Receive Date: 20080115
  Receipt Date: 20080109
  Transmission Date: 20080703
  Serious: Yes (Death, Other)
  Sender: FDA-Public Use
  Company Number: PHEH2006US02259

PATIENT

DRUGS (2)
  1. ZOMETA [Suspect]
     Indication: NEOPLASM MALIGNANT
  2. AREDIA [Suspect]

REACTIONS (16)
  - ANGIOSARCOMA [None]
  - ANXIETY [None]
  - BONE DISORDER [None]
  - DEFORMITY [None]
  - DENTAL OPERATION [None]
  - DEPRESSION [None]
  - EMOTIONAL DISTRESS [None]
  - HEPATIC LESION [None]
  - INJURY [None]
  - JOINT ARTHROPLASTY [None]
  - MASTICATION DISORDER [None]
  - METASTATIC NEOPLASM [None]
  - OSTEONECROSIS [None]
  - OSTEOTOMY [None]
  - PAIN [None]
  - SPINAL OSTEOARTHRITIS [None]
